FAERS Safety Report 20795748 (Version 3)
Quarter: 2022Q3

REPORT INFORMATION
  Report Type: Spontaneous
  Country: US (occurrence: US)
  Receive Date: 20220506
  Receipt Date: 20220928
  Transmission Date: 20221027
  Serious: Yes (Other)
  Sender: FDA-Public Use
  Company Number: US-PFIZER INC-202200605468

PATIENT
  Age: 56 Year
  Sex: Female

DRUGS (2)
  1. XELJANZ XR [Suspect]
     Active Substance: TOFACITINIB CITRATE
     Dosage: UNK
     Dates: end: 202207
  2. LISINOPRIL [Suspect]
     Active Substance: LISINOPRIL
     Dosage: UNK

REACTIONS (5)
  - Swollen tongue [Unknown]
  - Pharyngeal swelling [Unknown]
  - Diarrhoea [Unknown]
  - Abdominal discomfort [Unknown]
  - Vomiting [Unknown]

NARRATIVE: CASE EVENT DATE: 20220801
